FAERS Safety Report 8615788-3 (Version None)
Quarter: 2012Q3

REPORT INFORMATION
  Report Type: 
  Country: None (occurrence: None)
  Receive Date: 20120823
  Receipt Date: 20120816
  Transmission Date: 20120928
  Serious: Yes (Hospitalization, Other)
  Sender: FDA-Public Use
  Company Number: FR-PFIZER INC-2012200342

PATIENT
  Age: 53 Year
  Sex: Male

DRUGS (6)
  1. AMLODIPINE BESYLATE [Concomitant]
     Dosage: 5
  2. LEVOFLOXACIN [Suspect]
     Indication: ANTIBIOTIC THERAPY
     Dosage: 500 MG, 2X/DAY
     Route: 048
     Dates: start: 20120724, end: 20120801
  3. ATORVASTATIN [Suspect]
     Dosage: 1 DF, 1X/DAY
     Route: 048
     Dates: start: 20120726, end: 20120803
  4. AUGMENTIN '500' [Concomitant]
     Indication: SEPSIS
     Dosage: 1 G, 3X/DAY
     Dates: end: 20120724
  5. PLAVIX [Concomitant]
     Dosage: 75
  6. ROCEPHIN [Concomitant]
     Indication: SEPSIS
     Dosage: UNK
     Dates: start: 20120724

REACTIONS (9)
  - CELL DEATH [None]
  - HEPATIC ENZYME INCREASED [None]
  - HEPATOMEGALY [None]
  - C-REACTIVE PROTEIN INCREASED [None]
  - CHOLESTASIS [None]
  - HAEMOGLOBIN DECREASED [None]
  - PNEUMOPERITONEUM [None]
  - THROMBOCYTOSIS [None]
  - CREATININE RENAL CLEARANCE DECREASED [None]
